FAERS Safety Report 4707901-5 (Version None)
Quarter: 2005Q3

REPORT INFORMATION
  Report Type: 
  Country: None (occurrence: None)
  Receive Date: 20050707
  Receipt Date: 20050315
  Transmission Date: 20060218
  Serious: Yes (Hospitalization)
  Sender: FDA-Public Use
  Company Number: US-BRISTOL-MYERS SQUIBB COMPANY-12899118

PATIENT
  Age: 60 Year
  Sex: Female

DRUGS (2)
  1. CARBIDOPA + LEVODOPA CR TABS 25/100MG [Suspect]
     Route: 048
     Dates: start: 20050209
  2. LEVOFLOXACIN [Suspect]

REACTIONS (1)
  - RASH [None]
